FAERS Safety Report 20893953 (Version 1)
Quarter: 2022Q2

REPORT INFORMATION
  Report Type: Spontaneous
  Country: US (occurrence: None)
  Receive Date: 20220528
  Receipt Date: 20220528
  Transmission Date: 20220720
  Serious: Yes (Disabling)
  Sender: FDA-Public Use
  Company Number: None

PATIENT
  Age: 66 Year
  Sex: Female
  Weight: 44.55 kg

DRUGS (12)
  1. PAXLOVID [Suspect]
     Active Substance: NIRMATRELVIR\RITONAVIR
     Indication: SARS-CoV-2 test positive
     Dosage: FREQUENCY : EVERY 12 HOURS;?
     Route: 048
     Dates: start: 20220422, end: 20220427
  2. ACYCLOVIR [Concomitant]
     Active Substance: ACYCLOVIR
  3. ESTROGENS [Concomitant]
     Active Substance: ESTROGENS
  4. PROGESTERONE [Concomitant]
     Active Substance: PROGESTERONE
  5. MELOXICAM [Concomitant]
     Active Substance: MELOXICAM
  6. TOPIRAMATE [Concomitant]
     Active Substance: TOPIRAMATE
  7. SUMATRIPTAN [Concomitant]
     Active Substance: SUMATRIPTAN
  8. ALENDRONATE [Concomitant]
     Active Substance: ALENDRONATE SODIUM
  9. VITAMIN C [Concomitant]
     Active Substance: ASCORBIC ACID
  10. VITAMIN D NOS [Concomitant]
     Active Substance: VITAMIN D NOS
  11. MAGNESIUM [Concomitant]
     Active Substance: MAGNESIUM
  12. Multi Vitamin [Concomitant]

REACTIONS (6)
  - Feeling jittery [None]
  - Dysgeusia [None]
  - Cough [None]
  - SARS-CoV-2 test positive [None]
  - Illness [None]
  - Rebound effect [None]

NARRATIVE: CASE EVENT DATE: 20220506
